FAERS Safety Report 7495439-4 (Version None)
Quarter: 2011Q2

REPORT INFORMATION
  Report Type: 
  Country: None (occurrence: None)
  Receive Date: 20110523
  Receipt Date: 20110420
  Transmission Date: 20111010
  Serious: No
  Sender: FDA-Public Use
  Company Number: US-TYCO HEALTHCARE/MALLINCKRODT-T201100820

PATIENT
  Sex: Male
  Weight: 82.54 kg

DRUGS (6)
  1. FENTANYL-100 [Suspect]
     Indication: PAIN
     Dosage: 200 UG/HR EVERY 48 HOURS
     Dates: start: 20110401
  2. DILAUDID [Concomitant]
     Indication: PAIN
     Dosage: 8 MG, PRN, UP TO SIX A DAY
  3. MS CONTIN [Concomitant]
     Indication: PAIN
     Dosage: 75 MG, TID
  4. SOMA [Concomitant]
     Dosage: 350 MG, TID
  5. WELLBUTRIN XL [Concomitant]
     Indication: DEPRESSION
     Dosage: 150 MG, UNK
  6. ATENOLOL [Concomitant]
     Indication: HYPERTENSION
     Dosage: UNK

REACTIONS (1)
  - DRUG EFFECT DECREASED [None]
